FAERS Safety Report 8821363 (Version 3)
Quarter: 2013Q1

REPORT INFORMATION
  Report Type: Spontaneous
  Country: US (occurrence: US)
  Receive Date: 20121002
  Receipt Date: 20130213
  Transmission Date: 20140127
  Serious: Yes (Hospitalization, Other)
  Sender: FDA-Public Use
  Company Number: US-ELI_LILLY_AND_COMPANY-US201209006614

PATIENT
  Sex: Female

DRUGS (5)
  1. FORTEO [Suspect]
     Indication: OSTEOPOROSIS
     Dosage: 20 UG, QD
     Dates: start: 20100701, end: 20120630
  2. OMEPRAZOLE [Concomitant]
     Indication: GASTRIC DISORDER
     Dosage: UNK
  3. ASPIRIN [Concomitant]
     Dosage: 81 MG, UNK
  4. METOCLOPRAMIDE [Concomitant]
     Dosage: UNK
  5. GABAPENTIN [Concomitant]
     Indication: TRIGEMINAL NEURALGIA
     Dosage: 300 MG, QD

REACTIONS (4)
  - Bladder cancer [Recovered/Resolved]
  - Calculus bladder [Unknown]
  - Cystitis [Unknown]
  - Blood urine present [Unknown]
